FAERS Safety Report 9228697 (Version 3)
Quarter: 2015Q1

REPORT INFORMATION
  Report Type: Spontaneous
  Country: US (occurrence: US)
  Receive Date: 20130412
  Receipt Date: 20150327
  Transmission Date: 20150721
  Serious: Yes (Other)
  Sender: FDA-Public Use
  Company Number: US-BAYER-2013-045514

PATIENT
  Age: 35 Year
  Sex: Female
  Weight: 91 kg

DRUGS (17)
  1. MAXALT [Concomitant]
     Active Substance: RIZATRIPTAN BENZOATE
  2. MELOXICAM. [Concomitant]
     Active Substance: MELOXICAM
  3. PROVENTIL [Concomitant]
     Active Substance: ALBUTEROL
  4. SINGULAIR [Concomitant]
     Active Substance: MONTELUKAST SODIUM
     Indication: ASTHMA
     Dosage: UNK
     Dates: start: 2004
  5. YASMIN [Suspect]
     Active Substance: DROSPIRENONE\ETHINYL ESTRADIOL
     Indication: ACNE
     Dosage: UNK
     Dates: start: 2007, end: 2009
  6. AMBIEN [Concomitant]
     Active Substance: ZOLPIDEM TARTRATE
     Indication: INSOMNIA
     Dosage: UNK
     Dates: start: 2004, end: 2014
  7. ALBUTEROL. [Concomitant]
     Active Substance: ALBUTEROL
     Indication: DEPRESSION
     Dosage: UNK
     Dates: start: 2004
  8. IBUPROFEN. [Concomitant]
     Active Substance: IBUPROFEN
     Indication: PAIN
     Dosage: 400 MG, UNK
     Dates: start: 200912
  9. FLUTICASONE [Concomitant]
     Active Substance: FLUTICASONE\FLUTICASONE PROPIONATE
  10. PAXIL [Concomitant]
     Active Substance: PAROXETINE HYDROCHLORIDE
     Indication: DEPRESSION
     Dosage: UNK
     Dates: start: 2004, end: 2014
  11. QVAR [Concomitant]
     Active Substance: BECLOMETHASONE DIPROPIONATE
     Indication: ASTHMA
     Dosage: UNK
     Dates: start: 2004
  12. MOTRIN [Concomitant]
     Active Substance: IBUPROFEN
  13. MOBIC [Concomitant]
     Active Substance: MELOXICAM
  14. XANAX [Concomitant]
     Active Substance: ALPRAZOLAM
     Indication: ANXIETY
     Dosage: UNK
     Dates: start: 2005, end: 2014
  15. HYDROCODONE/ACETAMINOPHEN [Concomitant]
     Active Substance: ACETAMINOPHEN\HYDROCODONE
  16. NAPROXEN. [Concomitant]
     Active Substance: NAPROXEN
     Indication: HEADACHE
  17. FLOVENT [Concomitant]
     Active Substance: FLUTICASONE PROPIONATE

REACTIONS (17)
  - Varicose vein [None]
  - Thrombosis [None]
  - Abdominal pain [None]
  - Skin discolouration [None]
  - Emotional distress [None]
  - General physical health deterioration [Recovering/Resolving]
  - Anxiety [None]
  - Peripheral swelling [None]
  - Deep vein thrombosis [Recovering/Resolving]
  - Injury [Recovering/Resolving]
  - Pain [Recovering/Resolving]
  - Peripheral arterial occlusive disease [None]
  - Oedema [None]
  - Pain [None]
  - Cardiovascular disorder [None]
  - Panic attack [Recovering/Resolving]
  - Thrombophlebitis superficial [Recovered/Resolved]

NARRATIVE: CASE EVENT DATE: 200912
